FAERS Safety Report 6173767-2 (Version None)
Quarter: 2009Q2

REPORT INFORMATION
  Report Type: 
  Country: None (occurrence: None)
  Receive Date: 20090430
  Receipt Date: 20090422
  Transmission Date: 20091009
  Serious: Yes (Hospitalization, Other)
  Sender: FDA-Public Use
  Company Number: FR-AMGEN-QUU343892

PATIENT
  Sex: Male

DRUGS (8)
  1. ARANESP [Suspect]
     Indication: ANAEMIA OF MALIGNANT DISEASE
     Route: 058
     Dates: start: 20090209, end: 20090309
  2. PERINDOPRIL [Suspect]
  3. ENDOXAN [Suspect]
     Route: 042
     Dates: start: 20090212
  4. ADRIBLASTINE [Suspect]
     Route: 042
     Dates: start: 20090212
  5. MABTHERA [Suspect]
     Route: 042
     Dates: start: 20090212
  6. ONCOVIN [Suspect]
     Route: 042
     Dates: start: 20090212
  7. SOLU-MEDROL [Suspect]
     Route: 042
     Dates: start: 20090212
  8. CORTANCYL [Concomitant]
     Dates: start: 20090213, end: 20090216

REACTIONS (5)
  - CHEST PAIN [None]
  - CONVULSION [None]
  - DEEP VEIN THROMBOSIS [None]
  - HYPONATRAEMIA [None]
  - TROPONIN INCREASED [None]
